FAERS Safety Report 18549196 (Version 1)
Quarter: 2020Q4

REPORT INFORMATION
  Report Type: Spontaneous
  Country: ES (occurrence: ES)
  Receive Date: 20201126
  Receipt Date: 20201126
  Transmission Date: 20210114
  Serious: Yes (Hospitalization)
  Sender: FDA-Public Use
  Company Number: ES-JNJFOC-20201128479

PATIENT
  Age: 72 Year
  Sex: Male

DRUGS (3)
  1. LENALIDOMIDE [Suspect]
     Active Substance: LENALIDOMIDE
     Indication: PLASMA CELL MYELOMA
     Dosage: PARTE DEL ESQUEMA DARA-KRD. CICLO 18 EN EL MOMENTO DEL INGRESO
     Route: 042
     Dates: start: 201902
  2. DARZALEX [Suspect]
     Active Substance: DARATUMUMAB
     Indication: PLASMA CELL MYELOMA
     Dosage: DESCONOCIDA: DURANTE EL INGRESO LLEVA 18 CICLOS DESDE FEBRERO DE 2019
     Route: 042
     Dates: start: 201902
  3. KYPROLIS [Suspect]
     Active Substance: CARFILZOMIB
     Indication: PLASMA CELL MYELOMA
     Dosage: PARTE DE TRATAMIENTO CON DARA-KRD. CICLO 18 DURANTE EL INGRESO
     Route: 042
     Dates: start: 201902

REACTIONS (5)
  - Febrile neutropenia [Recovered/Resolved]
  - Product use issue [Unknown]
  - Off label use [Unknown]
  - Pancytopenia [Recovering/Resolving]
  - Diarrhoea [Recovered/Resolved]

NARRATIVE: CASE EVENT DATE: 201902
